FAERS Safety Report 23365489 (Version 1)
Quarter: 2024Q1

REPORT INFORMATION
  Report Type: Report from Study
  Country: US (occurrence: US)
  Receive Date: 20240104
  Receipt Date: 20240104
  Transmission Date: 20240409
  Serious: No
  Sender: FDA-Public Use
  Company Number: US-ALXN-A202306915

PATIENT
  Age: 51 Year
  Sex: Female
  Weight: 133.3 kg

DRUGS (19)
  1. STRENSIQ [Suspect]
     Active Substance: ASFOTASE ALFA
     Indication: Hypophosphatasia
     Dosage: 160 MG, TIW
     Route: 058
     Dates: start: 20230522
  2. STRENSIQ [Suspect]
     Active Substance: ASFOTASE ALFA
     Dosage: 2 MG/KG, EIGHT TIMES A WEEK
     Route: 058
  3. PROVENTIL HFA                      /00139501/ [Concomitant]
     Indication: Product used for unknown indication
     Dosage: 90 ?G, PRN
     Route: 055
  4. BUSPAR [Concomitant]
     Active Substance: BUSPIRONE HYDROCHLORIDE
     Indication: Product used for unknown indication
     Dosage: 5 MG, BID
     Route: 048
  5. BENZACLIN [Concomitant]
     Active Substance: BENZOYL PEROXIDE\CLINDAMYCIN PHOSPHATE
     Indication: Product used for unknown indication
     Dosage: UNK
     Route: 065
     Dates: start: 20211130
  6. CATAPRES [Concomitant]
     Active Substance: CLONIDINE HYDROCHLORIDE
     Indication: Product used for unknown indication
     Dosage: 0.1 MG, BID
     Route: 048
     Dates: start: 20211115
  7. ERGOCALCIFEROL [Concomitant]
     Active Substance: ERGOCALCIFEROL
     Indication: Product used for unknown indication
     Dosage: 1250 ?G, QW
     Route: 048
     Dates: start: 20230530
  8. NEXIUM [Concomitant]
     Active Substance: ESOMEPRAZOLE MAGNESIUM
     Indication: Product used for unknown indication
     Dosage: 40 MG, PRN
     Route: 048
  9. NEURONTIN [Concomitant]
     Active Substance: GABAPENTIN
     Indication: Product used for unknown indication
     Dosage: 100 MG, TID
     Route: 048
     Dates: start: 20220617
  10. HUMIRA [Concomitant]
     Active Substance: ADALIMUMAB
     Indication: Product used for unknown indication
     Dosage: 40 MG, UNK
     Route: 058
     Dates: start: 20221215
  11. NORCO [Concomitant]
     Active Substance: ACETAMINOPHEN\HYDROCODONE BITARTRATE
     Indication: Product used for unknown indication
     Dosage: 1 TABLET (5/325MG),TID
     Route: 048
  12. XYZAL [Concomitant]
     Active Substance: LEVOCETIRIZINE DIHYDROCHLORIDE
     Indication: Product used for unknown indication
     Dosage: 5 MG, QD
     Route: 048
  13. SINGULAIR [Concomitant]
     Active Substance: MONTELUKAST SODIUM
     Indication: Product used for unknown indication
     Dosage: 10 MG, QD
     Route: 048
     Dates: start: 20210928
  14. DELTASONE                          /00044701/ [Concomitant]
     Indication: Product used for unknown indication
     Dosage: 2.5 MG, 2 TABS IN MORNING AND 1 TAB AT LUNCH
     Route: 065
     Dates: start: 20230530
  15. DELTASONE                          /00044701/ [Concomitant]
     Dosage: 5 MG, EVERY OTHER DAY
     Route: 065
     Dates: start: 20230410
  16. REPATHA [Concomitant]
     Active Substance: EVOLOCUMAB
     Indication: Product used for unknown indication
     Dosage: 1 ML, Q2W
     Route: 058
  17. OZEMPIC [Concomitant]
     Active Substance: SEMAGLUTIDE
     Indication: Product used for unknown indication
     Dosage: 0.75 ML, QW
     Route: 058
     Dates: start: 20230411
  18. ALDACTONE                          /00006201/ [Concomitant]
     Indication: Product used for unknown indication
     Dosage: 100 MG, QD
     Route: 048
     Dates: start: 20211130
  19. CYANOCOBALAMIN [Concomitant]
     Active Substance: CYANOCOBALAMIN
     Indication: Product used for unknown indication
     Dosage: 1000 ?G, QD
     Route: 048

REACTIONS (12)
  - Heart rate increased [Unknown]
  - Palpitations [Unknown]
  - Rash [Unknown]
  - Fatigue [Unknown]
  - Pain [Unknown]
  - Musculoskeletal chest pain [Unknown]
  - Oropharyngeal pain [Not Recovered/Not Resolved]
  - Erythema [Not Recovered/Not Resolved]
  - Hypersomnia [Unknown]
  - Injection site reaction [Unknown]
  - Injection site pain [Not Recovered/Not Resolved]
  - Injection site rash [Unknown]

NARRATIVE: CASE EVENT DATE: 20230522
